FAERS Safety Report 16547026 (Version 1)
Quarter: 2019Q3

REPORT INFORMATION
  Report Type: Spontaneous
  Country: GB (occurrence: GB)
  Receive Date: 20190709
  Receipt Date: 20190709
  Transmission Date: 20191004
  Serious: Yes (Other)
  Sender: FDA-Public Use
  Company Number: GB-TEVA-2019-GB-1074350

PATIENT
  Age: 22 Year
  Sex: Female
  Weight: 50 kg

DRUGS (1)
  1. PREDNISOLONE. [Suspect]
     Active Substance: PREDNISOLONE
     Indication: DERMATITIS
     Dosage: REDUCING DOSE: WEEK 1 30MG PER DAY, REDUCING BY 5MG EVERY WEEK UNTIL 0MG
     Route: 048
     Dates: start: 20190325, end: 20190505

REACTIONS (3)
  - Depression suicidal [Recovered/Resolved with Sequelae]
  - Anxiety [Recovered/Resolved with Sequelae]
  - Mental disorder [Recovered/Resolved with Sequelae]

NARRATIVE: CASE EVENT DATE: 20190325
